FAERS Safety Report 5501354-5 (Version None)
Quarter: 2007Q4

REPORT INFORMATION
  Report Type: 
  Country: None (occurrence: None)
  Receive Date: 20071026
  Receipt Date: 20071019
  Transmission Date: 20080405
  Serious: Yes (Other)
  Sender: FDA-Public Use
  Company Number: 2007SP019505

PATIENT
  Sex: Female

DRUGS (2)
  1. PROVENTIL-HFA [Suspect]
     Indication: DRUG USE FOR UNKNOWN INDICATION
     Dosage: PO
     Route: 048
  2. PROVENTIL (PREV.) [Concomitant]

REACTIONS (2)
  - AGGRESSION [None]
  - NERVOUS SYSTEM DISORDER [None]
